FAERS Safety Report 8246422-2 (Version None)
Quarter: 2012Q1

REPORT INFORMATION
  Report Type: 
  Country: None (occurrence: None)
  Receive Date: 20120330
  Receipt Date: 20120319
  Transmission Date: 20120608
  Serious: Yes (Death)
  Sender: FDA-Public Use
  Company Number: FR-JNJFOC-20120214551

PATIENT
  Sex: Male
  Weight: 85 kg

DRUGS (5)
  1. ACETAMINOPHEN [Suspect]
     Indication: COUGH
     Route: 048
  2. ACTIFED [Suspect]
     Indication: COUGH
     Dosage: ONE TABLET AT NOON AND IN THE EVENING (6 HR INTERVAL)
     Route: 048
     Dates: start: 20101223, end: 20101223
  3. ACETAMINOPHEN [Suspect]
     Indication: ANALGESIC THERAPY
     Route: 048
  4. CARVEDILOL [Concomitant]
  5. ACTIFED [Suspect]
     Indication: INFLUENZA
     Dosage: ONE TABLET AT NOON AND IN THE EVENING (6 HR INTERVAL)
     Route: 048
     Dates: start: 20101223, end: 20101223

REACTIONS (10)
  - DYSPNOEA [None]
  - BACK PAIN [None]
  - ABDOMINAL PAIN UPPER [None]
  - VOMITING [None]
  - PAIN IN JAW [None]
  - DRUG ADMINISTRATION ERROR [None]
  - AORTIC DISSECTION [None]
  - PAIN IN EXTREMITY [None]
  - PERICARDIAL HAEMORRHAGE [None]
  - PALPITATIONS [None]
